FAERS Safety Report 6865859-7 (Version None)
Quarter: 2010Q3

REPORT INFORMATION
  Report Type: 
  Country: None (occurrence: None)
  Receive Date: 20100722
  Receipt Date: 20100714
  Transmission Date: 20110219
  Serious: Yes (Other)
  Sender: FDA-Public Use
  Company Number: US-BIOGENIDEC-2010BI023936

PATIENT
  Age: 52 Year
  Sex: Male

DRUGS (1)
  1. TYSABRI [Suspect]
     Indication: MULTIPLE SCLEROSIS
     Route: 042
     Dates: start: 20090513

REACTIONS (6)
  - ABASIA [None]
  - CONVULSION [None]
  - DIZZINESS [None]
  - GENERAL SYMPTOM [None]
  - PAIN IN EXTREMITY [None]
  - VISUAL IMPAIRMENT [None]
